FAERS Safety Report 20037357 (Version 1)
Quarter: 2021Q4

REPORT INFORMATION
  Report Type: Spontaneous
  Country: JP (occurrence: JP)
  Receive Date: 20211105
  Receipt Date: 20211105
  Transmission Date: 20220303
  Serious: Yes (Hospitalization, Other)
  Sender: FDA-Public Use
  Company Number: JP-GLAXOSMITHKLINE-JP2018JPN141573

PATIENT
  Age: 55 Year
  Sex: Female

DRUGS (3)
  1. AMBRISENTAN [Suspect]
     Active Substance: AMBRISENTAN
     Indication: Skin ulcer
     Dosage: UNK
     Route: 048
     Dates: start: 201410, end: 201605
  2. FLOLAN [Suspect]
     Active Substance: EPOPROSTENOL SODIUM
     Dosage: UNK
  3. CILOSTAZOL [Concomitant]
     Active Substance: CILOSTAZOL

REACTIONS (23)
  - Cellulitis [Recovered/Resolved]
  - Headache [Unknown]
  - Liver disorder [Unknown]
  - Skin ulcer [Unknown]
  - Condition aggravated [Unknown]
  - Retinal vein occlusion [Unknown]
  - Vision blurred [Unknown]
  - Cataract [Unknown]
  - Retinal vascular disorder [Unknown]
  - Arteriosclerotic retinopathy [Not Recovered/Not Resolved]
  - Retinal haemorrhage [Unknown]
  - Papilloedema [Recovered/Resolved]
  - Retinal exudates [Recovered/Resolved]
  - Retinal artery occlusion [Unknown]
  - Iritis [Recovering/Resolving]
  - Rheumatoid arthritis [Unknown]
  - Arthralgia [Unknown]
  - Arthritis [Unknown]
  - Cerebral infarction [Unknown]
  - Finger deformity [Unknown]
  - Osteolysis [Unknown]
  - Ingrowing nail [Unknown]
  - Product use in unapproved indication [Unknown]

NARRATIVE: CASE EVENT DATE: 20150901
